FAERS Safety Report 10666568 (Version 4)
Quarter: 2018Q2

REPORT INFORMATION
  Report Type: Spontaneous
  Country: JP (occurrence: JP)
  Receive Date: 20141221
  Receipt Date: 20180625
  Transmission Date: 20180711
  Serious: Yes (Death, Life-Threatening)
  Sender: FDA-Public Use
  Company Number: JP-ROCHE-1511597

PATIENT
  Age: 70 Year
  Sex: Female
  Weight: 35 kg

DRUGS (16)
  1. CHLOR-TRIMETON [Concomitant]
     Active Substance: CHLORPHENIRAMINE MALEATE
     Indication: PROPHYLAXIS
     Dosage: ONCE/CYCLE
     Route: 041
     Dates: start: 20140630
  2. CARBOPLATIN. [Concomitant]
     Active Substance: CARBOPLATIN
     Indication: PERITONEAL CARCINOMA METASTATIC
     Route: 041
     Dates: start: 20141125, end: 20141125
  3. MAGMITT [Concomitant]
     Active Substance: MAGNESIUM OXIDE
     Indication: CONSTIPATION
     Dosage: PROPER A DOSE
     Route: 048
     Dates: start: 20140606
  4. ARTIST [Concomitant]
     Active Substance: CARVEDILOL
     Indication: HYPERTENSION
     Route: 048
  5. CARBOPLATIN. [Concomitant]
     Active Substance: CARBOPLATIN
     Indication: PERITONEAL CARCINOMA METASTATIC
     Dosage: ONCE/CYCLE
     Route: 041
     Dates: start: 20140808, end: 2014
  6. PACLITAXEL. [Concomitant]
     Active Substance: PACLITAXEL
     Indication: PERITONEAL CARCINOMA METASTATIC
     Dosage: ONCE/CYCLE
     Route: 041
     Dates: start: 20140901, end: 2014
  7. FAMOTIDINE. [Concomitant]
     Active Substance: FAMOTIDINE
     Indication: PROPHYLAXIS
     Dosage: ONCE/CYCLE
     Route: 041
     Dates: start: 20140630
  8. AVASTIN [Suspect]
     Active Substance: BEVACIZUMAB
     Indication: PERITONEAL CARCINOMA METASTATIC
     Dosage: MOST RECENT DOSE ON 25/NOV/2014
     Route: 041
     Dates: start: 20140901, end: 20141125
  9. DEXART [Suspect]
     Active Substance: DEXAMETHASONE SODIUM PHOSPHATE
     Indication: PROPHYLAXIS
     Dosage: ONCE/CYCLE
     Route: 041
     Dates: start: 20140630
  10. CARBOPLATIN. [Concomitant]
     Active Substance: CARBOPLATIN
     Indication: PERITONEAL CARCINOMA METASTATIC
     Route: 041
     Dates: start: 20140630, end: 20140630
  11. JUZENTAIHOTO [Concomitant]
     Active Substance: HERBALS
     Indication: PERFORMANCE STATUS DECREASED
     Route: 048
     Dates: start: 20140730
  12. ARTIST [Concomitant]
     Active Substance: CARVEDILOL
     Indication: HYPERLIPIDAEMIA
  13. PACLITAXEL. [Concomitant]
     Active Substance: PACLITAXEL
     Indication: PERITONEAL CARCINOMA METASTATIC
     Route: 041
     Dates: start: 20141125, end: 20141125
  14. PACLITAXEL. [Concomitant]
     Active Substance: PACLITAXEL
     Indication: PERITONEAL CARCINOMA METASTATIC
     Dosage: ONCE/CYCLE
     Route: 041
     Dates: start: 20140630, end: 20140808
  15. ALOXI [Concomitant]
     Active Substance: PALONOSETRON HYDROCHLORIDE
     Indication: PROPHYLAXIS
     Dosage: ONCE/CYCLE
     Route: 041
     Dates: start: 20140630
  16. AMLODIPINE [Concomitant]
     Active Substance: AMLODIPINE BESYLATE
     Indication: HYPERTENSION
     Route: 048

REACTIONS (3)
  - Spinal deformity [Unknown]
  - Peritoneal carcinoma metastatic [Fatal]
  - Aortic dissection [Recovering/Resolving]

NARRATIVE: CASE EVENT DATE: 20141207
